FAERS Safety Report 8595911-X (Version None)
Quarter: 2012Q3

REPORT INFORMATION
  Report Type: 
  Country: None (occurrence: None)
  Receive Date: 20120815
  Receipt Date: 20120808
  Transmission Date: 20120928
  Serious: Yes (Other)
  Sender: FDA-Public Use
  Company Number: CA-ROCHE-1100213

PATIENT
  Sex: Female
  Weight: 56.75 kg

DRUGS (5)
  1. ACTEMRA [Suspect]
     Indication: RHEUMATOID ARTHRITIS
     Dosage: LAST INFUSION PRIOR TO SAE ON 26/JUN/2012
     Route: 042
     Dates: start: 20120222
  2. FOSAMAX [Concomitant]
  3. TYLENOL [Concomitant]
  4. METHOTREXATE [Concomitant]
  5. DICLOFENAC [Concomitant]

REACTIONS (2)
  - OPEN WOUND [None]
  - SUBCUTANEOUS ABSCESS [None]
